FAERS Safety Report 25998347 (Version 1)
Quarter: 2025Q4

REPORT INFORMATION
  Report Type: Report from Study
  Country: EU (occurrence: EU)
  Receive Date: 20251105
  Receipt Date: 20251105
  Transmission Date: 20260117
  Serious: Yes (Life-Threatening, Other)
  Sender: AUROBINDO
  Company Number: EU-AUROBINDO-AUR-APL-2025-055136

PATIENT
  Sex: Male
  Weight: 2.225 kg

DRUGS (2)
  1. CARBOPLATIN [Suspect]
     Active Substance: CARBOPLATIN
     Indication: Product used for unknown indication
     Dosage: 6.6 MILLIGRAM/KILOGRAM (DAYS 1-3)
     Route: 065
  2. ETOPOSIDE [Suspect]
     Active Substance: ETOPOSIDE
     Indication: Product used for unknown indication
     Dosage: 5 MILLIGRAM/KILOGRAM (DAYS 1-3)
     Route: 065

REACTIONS (2)
  - Hepatotoxicity [Recovered/Resolved]
  - Febrile neutropenia [Recovered/Resolved]
